FAERS Safety Report 19619071 (Version 1)
Quarter: 2021Q3

REPORT INFORMATION
  Report Type: Spontaneous
  Country: US (occurrence: US)
  Receive Date: 20210728
  Receipt Date: 20210728
  Transmission Date: 20211014
  Serious: Yes (Hospitalization, Other)
  Sender: FDA-Public Use
  Company Number: US-HIKMA PHARMACEUTICALS USA INC.-US-H14001-21-03372

PATIENT
  Age: 16 Year
  Sex: Female

DRUGS (1)
  1. METHAMPHETAMINE [Suspect]
     Active Substance: METHAMPHETAMINE
     Indication: PRODUCT USED FOR UNKNOWN INDICATION
     Dosage: UNKNOWN
     Route: 065

REACTIONS (14)
  - Haematemesis [Recovered/Resolved]
  - Mental status changes [Recovering/Resolving]
  - Mydriasis [Unknown]
  - Dysphagia [Unknown]
  - Hypertension [Unknown]
  - Tachycardia [Unknown]
  - Drug abuse [Unknown]
  - Abdominal pain [Unknown]
  - Abdominal tenderness [Unknown]
  - Nausea [Unknown]
  - Erythema [Unknown]
  - Toxicity to various agents [Unknown]
  - Feeling jittery [Unknown]
  - Oesophagitis [Unknown]
